FAERS Safety Report 8564208-6 (Version None)
Quarter: 2012Q3

REPORT INFORMATION
  Report Type: 
  Country: None (occurrence: None)
  Receive Date: 20120803
  Receipt Date: 20120730
  Transmission Date: 20120928
  Serious: Yes (Death, Hospitalization)
  Sender: FDA-Public Use
  Company Number: US-SANOFI-AVENTIS-2012SA054523

PATIENT
  Age: 77 Year
  Sex: Male
  Weight: 73 kg

DRUGS (3)
  1. SIMVASTATIN [Suspect]
     Indication: NON-SMALL CELL LUNG CANCER STAGE IV
     Route: 065
     Dates: start: 20120607, end: 20120719
  2. TAXOTERE [Suspect]
     Route: 041
     Dates: start: 20120719, end: 20120719
  3. TAXOTERE [Suspect]
     Indication: NON-SMALL CELL LUNG CANCER STAGE IV
     Route: 041
     Dates: start: 20120607, end: 20120607

REACTIONS (3)
  - PULMONARY HAEMORRHAGE [None]
  - FATIGUE [None]
  - RASH [None]
